FAERS Safety Report 9402930 (Version 2)
Quarter: 2013Q3

REPORT INFORMATION
  Report Type: Report from Study
  Country: BG (occurrence: BG)
  Receive Date: 20130716
  Receipt Date: 20130725
  Transmission Date: 20140515
  Serious: Yes (Hospitalization)
  Sender: FDA-Public Use
  Company Number: BG-ROCHE-1244650

PATIENT
  Age: 43 Year
  Sex: Female
  Weight: 65 kg

DRUGS (3)
  1. TRASTUZUMAB EMTANSINE [Suspect]
     Indication: BREAST CANCER
     Dosage: DATE OF LAST DOSE PRIOR TO SAE: 05/JUN/2013
     Route: 042
     Dates: start: 20101005, end: 20130605
  2. PROPRANOLOL [Concomitant]
     Indication: HYPERTENSION
     Route: 065
     Dates: start: 2009
  3. CARSIL [Concomitant]
     Route: 065
     Dates: start: 20121128

REACTIONS (1)
  - Anaemia [Recovered/Resolved]
